FAERS Safety Report 8473212-8 (Version None)
Quarter: 2012Q2

REPORT INFORMATION
  Report Type: 
  Country: None (occurrence: None)
  Receive Date: 20120627
  Receipt Date: 20120616
  Transmission Date: 20120825
  Serious: Yes (Other)
  Sender: FDA-Public Use
  Company Number: AE-ELI_LILLY_AND_COMPANY-AE201205010189

PATIENT
  Sex: Male

DRUGS (8)
  1. FENOFIBRATE [Concomitant]
     Indication: BLOOD CHOLESTEROL INCREASED
     Dosage: 20 MG, UNKNOWN
  2. LEVEMIR [Concomitant]
     Dosage: UNK, EACH EVENING
  3. ASPIRIN [Concomitant]
  4. CRESTOR [Concomitant]
     Indication: BLOOD CHOLESTEROL INCREASED
     Dosage: 20 MG, UNKNOWN
  5. LIPITOR [Concomitant]
  6. GLUCOBAY [Concomitant]
     Indication: TYPE 2 DIABETES MELLITUS
     Dosage: 2000 MG, QD
  7. GLUCOPHAGE [Concomitant]
  8. BYDUREON [Suspect]
     Indication: TYPE 2 DIABETES MELLITUS
     Dosage: 2 MG, WEEKLY (1/W)
     Route: 058
     Dates: start: 20120509

REACTIONS (3)
  - DRY EYE [None]
  - DRY SKIN [None]
  - CONSTIPATION [None]
